FAERS Safety Report 5078978-5 (Version None)
Quarter: 2006Q3

REPORT INFORMATION
  Report Type: 
  Country: None (occurrence: None)
  Receive Date: 20060814
  Receipt Date: 20060809
  Transmission Date: 20061208
  Serious: Yes (Other)
  Sender: FDA-Public Use
  Company Number: JP-BRACCO-BRO-010377

PATIENT
  Age: 46 Year
  Sex: Female

DRUGS (2)
  1. IOPAMIRON [Suspect]
     Indication: ABDOMINAL PAIN
     Route: 050
     Dates: start: 20060801, end: 20060801
  2. IOPAMIRON [Suspect]
     Indication: COMPUTERISED TOMOGRAM
     Route: 050
     Dates: start: 20060801, end: 20060801

REACTIONS (1)
  - PLEURAL EFFUSION [None]
